FAERS Safety Report 8659940 (Version 11)
Quarter: 2014Q3

REPORT INFORMATION
  Report Type: Report from Study
  Country: JP (occurrence: JP)
  Receive Date: 20120711
  Receipt Date: 20140825
  Transmission Date: 20150326
  Serious: Yes (Hospitalization, Other)
  Sender: FDA-Public Use
  Company Number: JP-UCBSA-060887

PATIENT
  Age: 42 Year
  Sex: Female
  Weight: 55.2 kg

DRUGS (18)
  1. METHOTREXATE [Suspect]
     Active Substance: METHOTREXATE
     Indication: RHEUMATOID ARTHRITIS
     Dosage: 16 MG, 3X/WEEK
     Route: 048
     Dates: start: 20120201
  2. LOXOPROFEN SODIUM HYDRATE [Concomitant]
     Active Substance: LOXOPROFEN SODIUM DIHYDRATE
     Dosage: 120 MG, ONCE DAILY (QD)
     Route: 048
     Dates: start: 20120130
  3. METOCLOPRAMIDE. [Concomitant]
     Active Substance: METOCLOPRAMIDE
     Indication: NAUSEA
     Dosage: 5 MG, AS NEEDED (PRN)
     Route: 048
     Dates: start: 20120301
  4. CERTOLIZUMAB PEGOL RA [Suspect]
     Active Substance: CERTOLIZUMAB PEGOL
     Indication: RHEUMATOID ARTHRITIS
     Dosage: 200 MG, EV 2 WEEKS(QOW)
     Route: 058
     Dates: start: 20120116, end: 20120620
  5. PURSENNID [Concomitant]
     Active Substance: SENNOSIDES A AND B CALCIUM
     Indication: CONSTIPATION
     Dosage: 12 UNK
     Route: 048
     Dates: start: 20120227
  6. METHOTREXATE [Suspect]
     Active Substance: METHOTREXATE
     Dosage: 10 MG, 3X/WEEK
     Route: 048
     Dates: start: 20111221, end: 20120106
  7. PREDNISOLONE. [Concomitant]
     Active Substance: PREDNISOLONE
     Indication: RHEUMATOID ARTHRITIS
     Dosage: .2 G, ONCE DAILY (QD)
     Route: 048
     Dates: start: 20120426
  8. PREDNISOLONE. [Concomitant]
     Active Substance: PREDNISOLONE
     Route: 048
     Dates: start: 20120807
  9. SENNOSIDE [Concomitant]
     Active Substance: SENNOSIDES
     Indication: CONSTIPATION
     Dosage: 12 MG, AS NEEDED (PRN)
     Route: 048
     Dates: start: 20120227
  10. PREDNISOLONE. [Concomitant]
     Active Substance: PREDNISOLONE
     Dosage: 2.5 MG, ONCE DAILY (QD)
     Route: 048
     Dates: start: 20120316, end: 20120425
  11. PREDOHAN [Concomitant]
     Active Substance: PREDNISOLONE
     Dosage: 2.5 MG, ONCE DAILY (QD)
     Route: 048
     Dates: start: 20120316, end: 20120425
  12. METHOTREXATE [Suspect]
     Active Substance: METHOTREXATE
     Dosage: 8 MG, 3X/WEEK
     Route: 048
     Dates: start: 20111207, end: 20111221
  13. FOLIC ACID. [Concomitant]
     Active Substance: FOLIC ACID
     Indication: PROPHYLAXIS
     Dosage: 5 MG, WEEKLY (QW)
     Route: 048
     Dates: start: 20111209
  14. LANSOPRAZOLE. [Concomitant]
     Active Substance: LANSOPRAZOLE
     Indication: GASTRITIS PROPHYLAXIS
     Dosage: 15 MG, ONCE DAILY (QD)
     Route: 048
     Dates: start: 20111207
  15. CERTOLIZUMAB PEGOL RA [Suspect]
     Active Substance: CERTOLIZUMAB PEGOL
     Dosage: LOADING DOSE: 400 MG, W0, W2, W4
     Route: 058
     Dates: start: 20111206, end: 20120116
  16. METHOTREXATE [Suspect]
     Active Substance: METHOTREXATE
     Dosage: 14 MG, 3X/WEEK
     Route: 048
     Dates: start: 20120118, end: 20120201
  17. DIFLUPREDNATE [Concomitant]
     Active Substance: DIFLUPREDNATE
     Indication: ERYTHEMA ANNULARE
     Dosage: PRN QS
     Route: 061
     Dates: start: 20111122
  18. METHOTREXATE [Suspect]
     Active Substance: METHOTREXATE
     Dosage: 12 MG, 3X/WEEK
     Route: 048
     Dates: start: 20120106, end: 20120118

REACTIONS (1)
  - Cervix carcinoma [Recovering/Resolving]

NARRATIVE: CASE EVENT DATE: 20120620
